FAERS Safety Report 19462877 (Version 2)
Quarter: 2022Q3

REPORT INFORMATION
  Report Type: Spontaneous
  Country: US (occurrence: US)
  Receive Date: 20210625
  Receipt Date: 20220728
  Transmission Date: 20221027
  Serious: Yes (Hospitalization, Other)
  Sender: FDA-Public Use
  Company Number: US-INSUD PHARMA-2106US00692

PATIENT

DRUGS (6)
  1. NUVESSA [Suspect]
     Active Substance: METRONIDAZOLE
     Indication: Colitis
     Dosage: 5 MILLIGRAM/KILOGRAM, THREE TIMES A DAY
     Route: 065
  2. MESALAMINE [Concomitant]
     Active Substance: MESALAMINE
     Indication: Colitis
  3. AMOXICILLIN [Concomitant]
     Active Substance: AMOXICILLIN
     Indication: Colitis
     Dosage: 50 MILLIGRAM/KILOGRAM, DIVIDED BY THREE
  4. DOXYCYCLINE [Concomitant]
     Active Substance: DOXYCYCLINE
     Indication: Colitis
     Dosage: 2 MILLIGRAM/KILOGRAM, TWICE A DAY
  5. VANCOMYCIN [Concomitant]
     Active Substance: VANCOMYCIN
     Indication: Colitis
     Dosage: 250 MILLIGRAM, QID
  6. PREDNISONE [Concomitant]
     Active Substance: PREDNISONE
     Indication: Colitis
     Dosage: GRADUAL WEAN
     Route: 042

REACTIONS (4)
  - Neurotoxicity [Recovered/Resolved]
  - Gait disturbance [Recovered/Resolved]
  - Dizziness [Recovered/Resolved]
  - Vomiting [Recovered/Resolved]
